FAERS Safety Report 7341770-2 (Version None)
Quarter: 2011Q1

REPORT INFORMATION
  Report Type: 
  Country: None (occurrence: None)
  Receive Date: 20110309
  Receipt Date: 20110304
  Transmission Date: 20110831
  Serious: Yes (Other)
  Sender: FDA-Public Use
  Company Number: US-PFIZER INC-2010182466

PATIENT
  Sex: Male

DRUGS (8)
  1. WELLBUTRIN XL [Concomitant]
     Indication: DEPRESSION
     Dosage: UNK
     Dates: start: 20060801
  2. COUMADIN [Concomitant]
     Indication: PULMONARY EMBOLISM
  3. LIPITOR [Concomitant]
     Indication: HYPERCHOLESTEROLAEMIA
     Dosage: UNK
     Dates: start: 20040701
  4. COUMADIN [Concomitant]
     Indication: DEEP VEIN THROMBOSIS
     Dosage: UNK
     Dates: start: 20040401
  5. CHANTIX [Suspect]
     Indication: SMOKING CESSATION THERAPY
     Dosage: STARTER PACK
     Dates: start: 20070301, end: 20070501
  6. COZAAR [Concomitant]
     Indication: HYPERTENSION
     Dosage: UNK
     Dates: start: 20020901, end: 20080401
  7. WELLBUTRIN XL [Concomitant]
     Indication: ANXIETY
  8. LEXAPRO [Concomitant]
     Indication: DEPRESSION
     Dosage: UNK
     Dates: start: 20070201

REACTIONS (5)
  - ANXIETY [None]
  - SUICIDAL IDEATION [None]
  - MENTAL DISORDER [None]
  - SOCIAL PHOBIA [None]
  - DEPRESSION [None]
